FAERS Safety Report 4284090-5 (Version None)
Quarter: 2004Q1

REPORT INFORMATION
  Report Type: 
  Country: None (occurrence: None)
  Receive Date: 20040130
  Receipt Date: 20040119
  Transmission Date: 20041129
  Serious: Yes (Death)
  Sender: FDA-Public Use
  Company Number: US-JNJFOC-20031003567

PATIENT
  Age: 83 Year
  Sex: Male
  Weight: 83.4619 kg

DRUGS (4)
  1. LEVAQUIN [Suspect]
     Indication: PNEUMONIA
     Dosage: 500 MG, INTRAVENOUS
     Route: 042
     Dates: start: 20030212
  2. ZITHROMAX [Concomitant]
  3. NEXIUM [Concomitant]
  4. ADVAIR (SERETIDE MITE) [Concomitant]

REACTIONS (6)
  - CARDIAC ARREST [None]
  - HAEMATOCRIT DECREASED [None]
  - HAEMOGLOBIN DECREASED [None]
  - LUNG INFILTRATION [None]
  - PLATELET COUNT DECREASED [None]
  - TORSADE DE POINTES [None]
